FAERS Safety Report 22904138 (Version 2)
Quarter: 2023Q4

REPORT INFORMATION
  Report Type: Report from Study
  Country: FR (occurrence: None)
  Receive Date: 20230905
  Receipt Date: 20231116
  Transmission Date: 20240110
  Serious: Yes (Life-Threatening, Hospitalization)
  Sender: FDA-Public Use
  Company Number: FR-ROCHE-3416048

PATIENT
  Age: 77 Year
  Sex: Female
  Weight: 56 kg

DRUGS (18)
  1. RITUXIMAB [Suspect]
     Active Substance: RITUXIMAB
     Indication: Follicular lymphoma
     Dosage: DAY 1, 8, 15 AND 22
     Route: 042
     Dates: start: 20230612, end: 20230703
  2. EPCORITAMAB [Suspect]
     Active Substance: EPCORITAMAB
     Indication: Follicular lymphoma
     Dosage: C1 (STEP-UP), CYCLES 2 (WEEKLY) PER PROTOCOL
     Route: 058
     Dates: start: 20230612, end: 20230731
  3. LENALIDOMIDE [Suspect]
     Active Substance: LENALIDOMIDE
     Indication: Follicular lymphoma
     Dosage: DAY 1 TO 21 OF A 28 DAY CYCLE, EVERY 1 DAYS; 15 MG DAY 1 TO 21 OF A 28 DAY CYCLE
     Route: 048
     Dates: start: 20230612, end: 20230820
  4. LENALIDOMIDE [Suspect]
     Active Substance: LENALIDOMIDE
     Dosage: DAY 1 TO 21 OF A 28 DAY CYCLE, EVERY 1 DAYS; 15 MG DAY 1 TO 21 OF A 28 DAY CYCLE
     Route: 048
     Dates: start: 20230918
  5. ATORVASTATIN CALCIUM TRIHYDRATE\EZETIMIBE [Concomitant]
     Active Substance: ATORVASTATIN CALCIUM TRIHYDRATE\EZETIMIBE
     Indication: Blood cholesterol
     Dates: start: 2021
  6. FLUTICASONE FUROATE\VILANTEROL TRIFENATATE [Concomitant]
     Active Substance: FLUTICASONE FUROATE\VILANTEROL TRIFENATATE
  7. PERINDOPRIL [Concomitant]
     Active Substance: PERINDOPRIL
     Dates: start: 2019
  8. ATORVASTATIN [Concomitant]
     Active Substance: ATORVASTATIN
     Indication: Blood cholesterol
     Dates: start: 2019
  9. INCRUSE ELLIPTA [Concomitant]
     Active Substance: UMECLIDINIUM BROMIDE
     Indication: Chronic obstructive pulmonary disease
     Dates: start: 2021
  10. OPTRUMA [Concomitant]
     Active Substance: RALOXIFENE HYDROCHLORIDE
     Dates: start: 2021
  11. XARELTO [Concomitant]
     Active Substance: RIVAROXABAN
     Dates: start: 2023
  12. BISOPROLOL [Concomitant]
     Active Substance: BISOPROLOL\BISOPROLOL FUMARATE
     Dates: start: 2020
  13. TRIMEPRAZINE [Concomitant]
     Active Substance: TRIMEPRAZINE
     Dates: start: 2020
  14. AMITRIPTYLINE HYDROCHLORIDE [Concomitant]
     Active Substance: AMITRIPTYLINE HYDROCHLORIDE
     Indication: Depression
     Dates: start: 2019
  15. INIPOMP [Concomitant]
     Active Substance: PANTOPRAZOLE SODIUM
     Dates: start: 2019
  16. CHOLECALCIFEROL [Concomitant]
     Active Substance: CHOLECALCIFEROL
     Dates: start: 2019
  17. PREDNISONE [Concomitant]
     Active Substance: PREDNISONE
     Dates: start: 20230817, end: 20230821
  18. RITUXIMAB [Concomitant]
     Active Substance: RITUXIMAB
     Indication: Follicular lymphoma
     Route: 065
     Dates: start: 201706, end: 201810

REACTIONS (1)
  - Hypokalaemia [Recovered/Resolved]

NARRATIVE: CASE EVENT DATE: 20230825
